FAERS Safety Report 4964244-2 (Version None)
Quarter: 2006Q2

REPORT INFORMATION
  Report Type: 
  Country: None (occurrence: None)
  Receive Date: 20060406
  Receipt Date: 20060324
  Transmission Date: 20061013
  Serious: Yes (Hospitalization)
  Sender: FDA-Public Use
  Company Number: PHBS2006CH04437

PATIENT
  Age: 84 Year
  Sex: Male

DRUGS (5)
  1. GLEEVEC [Suspect]
     Indication: NEOPLASM MALIGNANT
     Dosage: 400 MG/D
     Route: 065
     Dates: start: 20060212
  2. GLEEVEC [Suspect]
     Dosage: 400 MG/D
     Route: 065
  3. AMARYL [Suspect]
     Indication: DIABETES MELLITUS NON-INSULIN-DEPENDENT
     Dosage: 8 MG/DAY
     Route: 065
     Dates: end: 20060217
  4. SELIPRAN [Concomitant]
     Indication: HYPERCHOLESTEROLAEMIA
     Dosage: 20 MG/D
     Route: 065
  5. APROVEL [Concomitant]
     Indication: HYPERTENSION
     Dosage: 150 MG/D
     Route: 065

REACTIONS (7)
  - ANOREXIA [None]
  - BLOOD GLUCOSE DECREASED [None]
  - CONFUSIONAL STATE [None]
  - DIARRHOEA [None]
  - FALL [None]
  - HYPOGLYCAEMIA [None]
  - SYNCOPE [None]
